FAERS Safety Report 16363281 (Version 1)
Quarter: 2019Q3

REPORT INFORMATION
  Report Type: Spontaneous
  Country: US (occurrence: US)
  Receive Date: 20190527
  Receipt Date: 20190527
  Transmission Date: 20191004
  Serious: Yes (Other)
  Sender: FDA-Public Use
  Company Number: None

PATIENT
  Age: 2 Year
  Sex: Female
  Weight: 15.3 kg

DRUGS (2)
  1. MULTIVITAMIN [Concomitant]
     Active Substance: VITAMINS
  2. EQUATE BABY SUNSCREEN [Suspect]
     Active Substance: AVOBENZONE\HOMOSALATE\OCTISALATE\OCTOCRYLENE\OXYBENZONE
     Indication: PROPHYLAXIS
     Dosage: ?          OTHER STRENGTH:SPF;?
     Route: 061
     Dates: start: 20190525, end: 20190525

REACTIONS (5)
  - Application site wound [None]
  - Rash macular [None]
  - Urticaria [None]
  - Application site burn [None]
  - Rash erythematous [None]

NARRATIVE: CASE EVENT DATE: 20190526
